FAERS Safety Report 7732854-5 (Version None)
Quarter: 2011Q3

REPORT INFORMATION
  Report Type: 
  Country: None (occurrence: None)
  Receive Date: 20110902
  Receipt Date: 20110902
  Transmission Date: 20111222
  Serious: Yes (Life-Threatening, Hospitalization, Disabling)
  Sender: FDA-Public Use
  Company Number: None

PATIENT
  Age: 26 Year
  Sex: Female
  Weight: 65.9 kg

DRUGS (2)
  1. AVELOX [Suspect]
     Indication: SINUSITIS
     Dosage: 400 MG 1 X DAY
     Dates: start: 20110610
  2. AVELOX [Suspect]
     Indication: SINUSITIS
     Dosage: 400 MG 1 X DAY
     Dates: start: 20110630

REACTIONS (12)
  - PYREXIA [None]
  - PRURITUS [None]
  - RASH [None]
  - SWELLING FACE [None]
  - ABDOMINAL RIGIDITY [None]
  - GALLBLADDER ENLARGEMENT [None]
  - BLOOD PRESSURE ABNORMAL [None]
  - LIP SWELLING [None]
  - WHITE BLOOD CELL COUNT DECREASED [None]
  - NEUROPATHY PERIPHERAL [None]
  - VISION BLURRED [None]
  - LIVER DISORDER [None]
